FAERS Safety Report 12923455 (Version 1)
Quarter: 2016Q4

REPORT INFORMATION
  Report Type: Spontaneous
  Country: US (occurrence: US)
  Receive Date: 20161109
  Receipt Date: 20161109
  Transmission Date: 20170207
  Serious: No
  Sender: FDA-Public Use
  Company Number: US-PFIZER INC-2016516258

PATIENT

DRUGS (2)
  1. PREMARIN [Suspect]
     Active Substance: ESTROGENS, CONJUGATED
     Dosage: 1 G, DAILY, FOR 5 DAYS
     Dates: start: 20161011
  2. PREMARIN [Suspect]
     Active Substance: ESTROGENS, CONJUGATED
     Dosage: UNK, 2X/WEEK

REACTIONS (4)
  - Skin tightness [Unknown]
  - Product use issue [Unknown]
  - Abdominal distension [Unknown]
  - Breast swelling [Unknown]

NARRATIVE: CASE EVENT DATE: 20161011
